FAERS Safety Report 7265829-3 (Version None)
Quarter: 2011Q1

REPORT INFORMATION
  Report Type: 
  Country: None (occurrence: None)
  Receive Date: 20110131
  Receipt Date: 20110126
  Transmission Date: 20110831
  Serious: Yes (Hospitalization)
  Sender: FDA-Public Use
  Company Number: A0887157A

PATIENT
  Age: 66 Year
  Sex: Female

DRUGS (1)
  1. AVANDIA [Suspect]
     Dosage: 2MG PER DAY
     Route: 048
     Dates: start: 20040115, end: 20061210

REACTIONS (6)
  - CEREBROVASCULAR ACCIDENT [None]
  - CARDIOMEGALY [None]
  - CORONARY ARTERY EMBOLISM [None]
  - DEEP VEIN THROMBOSIS [None]
  - VENA CAVA FILTER INSERTION [None]
  - PARAPARESIS [None]
